FAERS Safety Report 21830375 (Version 1)
Quarter: 2023Q1

REPORT INFORMATION
  Report Type: Spontaneous
  Country: US (occurrence: US)
  Receive Date: 20230106
  Receipt Date: 20230106
  Transmission Date: 20230418
  Serious: Yes (Hospitalization, Other)
  Sender: FDA-Public Use
  Company Number: US-BRISTOL-MYERS SQUIBB COMPANY-2023-002210

PATIENT
  Age: 71 Year
  Sex: Female

DRUGS (1)
  1. REVLIMID [Suspect]
     Active Substance: LENALIDOMIDE
     Indication: Plasma cell myeloma
     Dosage: 5 MG DAILY ORAL.
     Route: 048
     Dates: start: 20181003

REACTIONS (6)
  - Diarrhoea [Unknown]
  - Dehydration [Unknown]
  - Deafness [Unknown]
  - Chills [Unknown]
  - Headache [Unknown]
  - Productive cough [Unknown]
